FAERS Safety Report 4865365-5 (Version None)
Quarter: 2005Q4

REPORT INFORMATION
  Report Type: 
  Country: None (occurrence: None)
  Receive Date: 20051220
  Receipt Date: 20051220
  Transmission Date: 20060501
  Serious: Yes (Hospitalization)
  Sender: FDA-Public Use
  Company Number: None

PATIENT
  Age: 44 Year

DRUGS (1)
  1. LISINOPRIL [Suspect]
     Indication: RENAL FAILURE ACUTE
     Dosage: 40 MG PO DAILY
     Route: 048

REACTIONS (1)
  - CHEST PAIN [None]
